FAERS Safety Report 9407370 (Version 4)
Quarter: 2013Q4

REPORT INFORMATION
  Report Type: Spontaneous
  Country: JP (occurrence: JP)
  Receive Date: 20130718
  Receipt Date: 20131121
  Transmission Date: 20140711
  Serious: Yes (Hospitalization, Other)
  Sender: FDA-Public Use
  Company Number: JP-B.I. PHARMACEUTICALS,INC./RIDGEFIELD-2013-BI-20521NB

PATIENT
  Sex: Male
  Weight: 73 kg

DRUGS (8)
  1. PRAZAXA [Suspect]
     Indication: ATRIAL FIBRILLATION
     Route: 048
     Dates: start: 201103
  2. UNISIA / CANDESARTAN CILEXETIL_AMLODIPINE BESILATE COMBINED DRUG [Concomitant]
     Route: 065
     Dates: start: 20131018
  3. GLACTIV / SITAGLIPTIN PHOSPHATE HYDRATE [Concomitant]
     Route: 065
     Dates: start: 20131018
  4. URSO / URSODEOXYCHOLIC ACID [Concomitant]
     Route: 065
     Dates: start: 20131018
  5. GOSPER LEVER / LIVER HYDROLYSATE [Concomitant]
     Route: 065
     Dates: start: 20131018
  6. ONEALFA / ALFACALCIDOL [Concomitant]
     Route: 065
     Dates: start: 20131018
  7. PARIET / SODIUM RABEPRAZOLE [Concomitant]
     Route: 065
     Dates: start: 20131018
  8. SEIBULE / MIGLITOL [Concomitant]
     Route: 065
     Dates: start: 20131018

REACTIONS (5)
  - Immune thrombocytopenic purpura [Not Recovered/Not Resolved]
  - Sudden hearing loss [Unknown]
  - Cerebral infarction [Unknown]
  - Dizziness [Unknown]
  - Dizziness [Unknown]
